FAERS Safety Report 19185797 (Version 1)
Quarter: 2021Q2

REPORT INFORMATION
  Report Type: Spontaneous
  Country: US (occurrence: US)
  Receive Date: 20210427
  Receipt Date: 20210427
  Transmission Date: 20210717
  Serious: Yes (Other)
  Sender: FDA-Public Use
  Company Number: US-PFIZER INC-2018500514

PATIENT
  Age: 58 Year
  Sex: Male
  Weight: 122 kg

DRUGS (2)
  1. LYRICA [Suspect]
     Active Substance: PREGABALIN
     Dosage: 100 MG,  2X/DAY (SIG: TAKE 1 CAPSULE (100 MG TOTAL) BY MOUTH 2(TWO) TIMES A DAY)
     Route: 048
     Dates: start: 20190404
  2. LYRICA [Suspect]
     Active Substance: PREGABALIN
     Indication: DIABETIC NEUROPATHY
     Dosage: 75 MG, 2 TIMES A DAY
     Route: 048

REACTIONS (3)
  - Neoplasm malignant [Unknown]
  - Memory impairment [Unknown]
  - Cognitive disorder [Unknown]
